FAERS Safety Report 4715740-4 (Version None)
Quarter: 2005Q2

REPORT INFORMATION
  Report Type: 
  Country: None (occurrence: None)
  Receive Date: 20050629
  Receipt Date: 20050401
  Transmission Date: 20051028
  Serious: No
  Sender: FDA-Public Use
  Company Number: SP00425

PATIENT
  Sex: Female

DRUGS (3)
  1. XIFAXAN [Suspect]
     Dosage: UNKNOWN, ORAL
     Route: 048
  2. LIPITOR [Suspect]
  3. FLAGYL [Concomitant]

REACTIONS (1)
  - HEPATIC ENZYME INCREASED [None]
